FAERS Safety Report 20897057 (Version 1)
Quarter: 2022Q2

REPORT INFORMATION
  Report Type: Report from Study
  Country: US (occurrence: US)
  Receive Date: 20220531
  Receipt Date: 20220531
  Transmission Date: 20220721
  Serious: Yes (Hospitalization)
  Sender: FDA-Public Use
  Company Number: US-SA-SAC20220526000773

PATIENT
  Age: 51 Year
  Sex: Female

DRUGS (2)
  1. SUTIMLIMAB-JOME [Suspect]
     Active Substance: SUTIMLIMAB-JOME
     Indication: Coronary artery disease
     Dosage: 7.5 G, QOW
     Route: 040
     Dates: start: 20220517, end: 2022
  2. SUTIMLIMAB-JOME [Suspect]
     Active Substance: SUTIMLIMAB-JOME
     Dosage: 7.5 G, QOW
     Route: 040
     Dates: start: 20220524

REACTIONS (1)
  - Illness [Recovering/Resolving]

NARRATIVE: CASE EVENT DATE: 20220524
